FAERS Safety Report 12394715 (Version 1)
Quarter: 2016Q2

REPORT INFORMATION
  Report Type: Spontaneous
  Country: NL (occurrence: NL)
  Receive Date: 20160523
  Receipt Date: 20160523
  Transmission Date: 20160815
  Serious: Yes (Other)
  Sender: FDA-Public Use
  Company Number: NL-HQ SPECIALTY-NL-2016INT000287

PATIENT
  Age: 16 Month
  Sex: Female

DRUGS (15)
  1. BLEOMYCIN [Suspect]
     Active Substance: BLEOMYCIN SULFATE
     Indication: METASTASIS
  2. VINBLASTINE [Suspect]
     Active Substance: VINBLASTINE
     Indication: METASTASES TO LUNG
  3. VINBLASTINE [Suspect]
     Active Substance: VINBLASTINE
     Indication: METASTASIS
  4. CISPLATIN. [Suspect]
     Active Substance: CISPLATIN
     Indication: METASTASIS
  5. BLEOMYCIN [Suspect]
     Active Substance: BLEOMYCIN SULFATE
     Indication: METASTASES TO LUNG
  6. IFOSFAMIDE. [Suspect]
     Active Substance: IFOSFAMIDE
     Indication: METASTASES TO LUNG
  7. CISPLATIN. [Suspect]
     Active Substance: CISPLATIN
     Indication: OVARIAN EMBRYONAL CARCINOMA
     Dosage: UNK
     Dates: start: 1991
  8. ETOPOSIDE. [Suspect]
     Active Substance: ETOPOSIDE
     Indication: METASTASES TO LUNG
  9. IFOSFAMIDE. [Suspect]
     Active Substance: IFOSFAMIDE
     Indication: METASTASIS
  10. ETOPOSIDE. [Suspect]
     Active Substance: ETOPOSIDE
     Indication: METASTASIS
  11. IFOSFAMIDE. [Suspect]
     Active Substance: IFOSFAMIDE
     Indication: OVARIAN EMBRYONAL CARCINOMA
     Dosage: UNK
     Dates: start: 1991
  12. CISPLATIN. [Suspect]
     Active Substance: CISPLATIN
     Indication: METASTASES TO LUNG
  13. ETOPOSIDE. [Suspect]
     Active Substance: ETOPOSIDE
     Indication: OVARIAN EMBRYONAL CARCINOMA
     Dosage: UNK
     Dates: start: 1991
  14. VINBLASTINE [Suspect]
     Active Substance: VINBLASTINE
     Indication: OVARIAN EMBRYONAL CARCINOMA
     Dosage: UNK
     Dates: start: 1991
  15. BLEOMYCIN [Suspect]
     Active Substance: BLEOMYCIN SULFATE
     Indication: OVARIAN EMBRYONAL CARCINOMA
     Dosage: UNK
     Dates: start: 1991

REACTIONS (5)
  - Dilatation ventricular [Unknown]
  - Deafness [Unknown]
  - Paraplegia [Unknown]
  - Bundle branch block left [Unknown]
  - Scoliosis [Unknown]
